FAERS Safety Report 13539053 (Version 3)
Quarter: 2017Q3

REPORT INFORMATION
  Report Type: Report from Study
  Country: None (occurrence: GB)
  Receive Date: 20170512
  Receipt Date: 20170704
  Transmission Date: 20171127
  Serious: Yes (Hospitalization, Other)
  Sender: FDA-Public Use
  Company Number: GB-ABBVIE-17K-167-1971718-00

PATIENT
  Age: 61 Year
  Sex: Female

DRUGS (1)
  1. HUMIRA [Suspect]
     Active Substance: ADALIMUMAB
     Indication: RHEUMATOID ARTHRITIS
     Route: 058
     Dates: start: 20170223

REACTIONS (9)
  - Pain [Not Recovered/Not Resolved]
  - Hypophagia [Unknown]
  - Malaise [Unknown]
  - Rib fracture [Unknown]
  - Dizziness [Unknown]
  - Nausea [Unknown]
  - Infection [Unknown]
  - Musculoskeletal pain [Not Recovered/Not Resolved]
  - Anxiety [Unknown]

NARRATIVE: CASE EVENT DATE: 2017
